FAERS Safety Report 7574524-2 (Version None)
Quarter: 2011Q2

REPORT INFORMATION
  Report Type: 
  Country: None (occurrence: None)
  Receive Date: 20110627
  Receipt Date: 20110527
  Transmission Date: 20111010
  Serious: Yes (Hospitalization, Other)
  Sender: FDA-Public Use
  Company Number: US-BAYER-201026419NA

PATIENT
  Age: 42 Year
  Sex: Female

DRUGS (3)
  1. YAZ [Suspect]
     Indication: CONTRACEPTION
     Dosage: UNK
     Route: 048
     Dates: start: 20060822, end: 20070601
  2. YAZ [Suspect]
     Indication: PELVIC PAIN
  3. YAZ [Suspect]
     Indication: DYSMENORRHOEA

REACTIONS (2)
  - PULMONARY EMBOLISM [None]
  - ANXIETY [None]
